FAERS Safety Report 9028229 (Version 1)
Quarter: 2013Q1

REPORT INFORMATION
  Report Type: Spontaneous
  Country: US (occurrence: None)
  Receive Date: 20130115
  Receipt Date: 20130115
  Transmission Date: 20140127
  Serious: Yes (Life-Threatening, Hospitalization)
  Sender: FDA-Public Use
  Company Number: None

PATIENT
  Age: 53 Year
  Sex: Male
  Weight: 94.7 kg

DRUGS (2)
  1. FENTANYL [Suspect]
     Route: 040
     Dates: start: 20120917, end: 20120917
  2. VERSED [Suspect]
     Route: 040
     Dates: start: 20120917, end: 20120917

REACTIONS (3)
  - Respiratory arrest [None]
  - Bradycardia [None]
  - Cardiac arrest [None]
